FAERS Safety Report 24033802 (Version 1)
Quarter: 2024Q3

REPORT INFORMATION
  Report Type: Spontaneous
  Country: US (occurrence: US)
  Receive Date: 20240701
  Receipt Date: 20240701
  Transmission Date: 20241017
  Serious: No
  Sender: BRISTOL MYERS SQUIBB
  Company Number: US-BRISTOL-MYERS SQUIBB COMPANY-2024-091708

PATIENT
  Age: 65 Year
  Sex: Female

DRUGS (1)
  1. REBLOZYL [Suspect]
     Active Substance: LUSPATERCEPT-AAMT
     Indication: Product used for unknown indication
     Dosage: DOSE : UNAVAILABLE, CALLER HAD TO DIS;     FREQ : UNAVAILABLE, CALLER HAD TO DISCONNECT CALL.

REACTIONS (5)
  - Diarrhoea [Unknown]
  - Dizziness [Unknown]
  - Balance disorder [Unknown]
  - Dehydration [Unknown]
  - Bradycardia [Unknown]

NARRATIVE: CASE EVENT DATE: 20240605
